FAERS Safety Report 12088517 (Version 2)
Quarter: 2016Q1

REPORT INFORMATION
  Report Type: Spontaneous
  Country: US (occurrence: US)
  Receive Date: 20160218
  Receipt Date: 20160224
  Transmission Date: 20160526
  Serious: Yes (Hospitalization, Other)
  Sender: FDA-Public Use
  Company Number: US-ALVOGEN-2016-ALVOGEN-022099

PATIENT
  Age: 38 Year
  Sex: Female

DRUGS (1)
  1. NITROFURANTOIN MONOHYDRATE/MACROCRYSTALS [Suspect]
     Active Substance: NITROFURANTOIN\NITROFURANTOIN MONOHYDRATE
     Indication: URINARY TRACT INFECTION
     Route: 048
     Dates: start: 20160212, end: 20160213

REACTIONS (6)
  - Abdominal discomfort [Recovered/Resolved]
  - Exposure during pregnancy [Recovered/Resolved]
  - Abdominal pain [Recovered/Resolved]
  - Gait disturbance [Recovered/Resolved]
  - Vaginal haemorrhage [Recovered/Resolved]
  - Abortion spontaneous [Unknown]

NARRATIVE: CASE EVENT DATE: 20160112
